FAERS Safety Report 5636105-7 (Version None)
Quarter: 2008Q1

REPORT INFORMATION
  Report Type: 
  Country: None (occurrence: None)
  Receive Date: 20080225
  Receipt Date: 20080212
  Transmission Date: 20080703
  Serious: Yes (Death)
  Sender: FDA-Public Use
  Company Number: US-JNJFOC-20070704175

PATIENT
  Sex: Male
  Weight: 102.97 kg

DRUGS (7)
  1. FENTANYL TRANSDERMAL SYSTEM [Suspect]
     Route: 062
  2. FENTANYL TRANSDERMAL SYSTEM [Suspect]
     Indication: PAIN
     Route: 062
  3. DIAZEPAM [Suspect]
     Indication: DRUG USE FOR UNKNOWN INDICATION
  4. CLONAZEPAM [Concomitant]
  5. DOXEPIN HCL [Concomitant]
  6. QUETIAPINE FUMARATE [Concomitant]
  7. PERCOCET [Concomitant]

REACTIONS (1)
  - DRUG TOXICITY [None]
